FAERS Safety Report 7408948-0 (Version None)
Quarter: 2011Q2

REPORT INFORMATION
  Report Type: 
  Country: None (occurrence: None)
  Receive Date: 20110412
  Receipt Date: 20110408
  Transmission Date: 20111010
  Serious: Yes (Other)
  Sender: FDA-Public Use
  Company Number: US-PFIZER INC-2011078332

PATIENT
  Sex: Male
  Weight: 136.5 kg

DRUGS (1)
  1. VIAGRA [Suspect]
     Dosage: 500 MG, 150 TIMES A DAY
     Route: 048

REACTIONS (2)
  - INCORRECT DOSE ADMINISTERED [None]
  - PENIS DISORDER [None]
